FAERS Safety Report 4491665-7 (Version None)
Quarter: 2004Q4

REPORT INFORMATION
  Report Type: 
  Country: None (occurrence: None)
  Receive Date: 20041101
  Receipt Date: 20041016
  Transmission Date: 20050328
  Serious: Yes (Other)
  Sender: FDA-Public Use
  Company Number: SUS1-2004-00611

PATIENT
  Age: 82 Year
  Sex: Male
  Weight: 68 kg

DRUGS (7)
  1. PENTASA [Suspect]
     Indication: INFLAMMATORY BOWEL DISEASE
     Dosage: FOUR 250 MG CAPSULES, 3X/DAY;TID
     Dates: start: 20040701
  2. IBUPROFEN [Concomitant]
  3. METOPROLOL SUCCINATE [Concomitant]
  4. HYDROCHLOROTHIAZIDE [Concomitant]
  5. NIFEDIPINE [Concomitant]
  6. OMEPRAZOLE [Concomitant]
  7. ASTELIN [Concomitant]

REACTIONS (2)
  - FATIGUE [None]
  - RENAL IMPAIRMENT [None]
